FAERS Safety Report 9010475 (Version 1)
Quarter: 2013Q1

REPORT INFORMATION
  Report Type: Spontaneous
  Country: US (occurrence: US)
  Receive Date: 20130109
  Receipt Date: 20130109
  Transmission Date: 20140127
  Serious: No
  Sender: FDA-Public Use
  Company Number: US-009507513-1301USA002864

PATIENT
  Sex: 0

DRUGS (1)
  1. EMEND FOR INJECTION [Suspect]

REACTIONS (4)
  - Erythema [Unknown]
  - Pain [Unknown]
  - Swelling [Unknown]
  - Phlebitis [Unknown]
